FAERS Safety Report 8405118-4 (Version None)
Quarter: 2012Q2

REPORT INFORMATION
  Report Type: 
  Country: None (occurrence: None)
  Receive Date: 20120602
  Receipt Date: 20120530
  Transmission Date: 20120825
  Serious: Yes (Hospitalization)
  Sender: FDA-Public Use
  Company Number: CH-BAYER-2012-053010

PATIENT
  Age: 67 Year
  Sex: Female

DRUGS (7)
  1. TORSEMIDE [Concomitant]
     Dosage: UNK
  2. ASPIRIN [Suspect]
     Dosage: 100 MG, QD
     Route: 048
     Dates: end: 20111122
  3. METFORMIN HCL [Concomitant]
     Dosage: UNK
  4. MICARDIS [Concomitant]
     Dosage: UNK
  5. NEBIVOLOL [Concomitant]
     Dosage: UNK
  6. INSULIN MIXTARD [Concomitant]
     Dosage: UNK
  7. ATORVASTATIN CALCIUM [Concomitant]
     Dosage: UNK

REACTIONS (5)
  - TROPONIN T INCREASED [None]
  - ANAEMIA [None]
  - RENAL FAILURE ACUTE [None]
  - HYPOVOLAEMIA [None]
  - DUODENAL ULCER [None]
